FAERS Safety Report 7642938-8 (Version None)
Quarter: 2011Q3

REPORT INFORMATION
  Report Type: 
  Country: None (occurrence: None)
  Receive Date: 20110728
  Receipt Date: 20101215
  Transmission Date: 20111222
  Serious: No
  Sender: FDA-Public Use
  Company Number: US-BAYER-2010-008061

PATIENT
  Age: 92 Year
  Sex: Female

DRUGS (1)
  1. CIPRO [Suspect]
     Dosage: 100 MG, UNK
     Route: 048

REACTIONS (1)
  - TENDON PAIN [None]
